FAERS Safety Report 10089396 (Version 1)
Quarter: 2014Q2

REPORT INFORMATION
  Report Type: Spontaneous
  Country: US (occurrence: None)
  Receive Date: 20140418
  Receipt Date: 20140418
  Transmission Date: 20141212
  Serious: No
  Sender: FDA-Public Use
  Company Number: None

PATIENT
  Age: 63 Year
  Sex: Female

DRUGS (1)
  1. SIMPONI [Suspect]
     Indication: COLITIS ULCERATIVE
     Dosage: 50MG Q4W  SQ
     Route: 058
     Dates: start: 20140220

REACTIONS (2)
  - Cardiac failure congestive [None]
  - Condition aggravated [None]
